FAERS Safety Report 11517117 (Version 2)
Quarter: 2015Q4

REPORT INFORMATION
  Report Type: Report from Study
  Country: FR (occurrence: FR)
  Receive Date: 20150917
  Receipt Date: 20151009
  Transmission Date: 20160304
  Serious: Yes (Death, Hospitalization)
  Sender: FDA-Public Use
  Company Number: FR-CELGENE-FRA-2015054449

PATIENT
  Age: 73 Year
  Sex: Male
  Weight: 70 kg

DRUGS (3)
  1. AZACITIDINE. [Suspect]
     Active Substance: AZACITIDINE
     Indication: MYELODYSPLASTIC SYNDROME
     Dosage: 135 MILLIGRAM
     Route: 058
     Dates: start: 20150414, end: 20150418
  2. ARANESP [Concomitant]
     Active Substance: DARBEPOETIN ALFA
     Indication: MYELODYSPLASTIC SYNDROME
     Dosage: 3 GRAM
     Route: 058
     Dates: start: 20150323
  3. ARANESP [Concomitant]
     Active Substance: DARBEPOETIN ALFA
     Route: 058

REACTIONS (3)
  - Myelodysplastic syndrome [Fatal]
  - Bronchopulmonary aspergillosis [Not Recovered/Not Resolved]
  - Febrile neutropenia [Recovered/Resolved]

NARRATIVE: CASE EVENT DATE: 20150504
